FAERS Safety Report 21766089 (Version 1)
Quarter: 2022Q4

REPORT INFORMATION
  Report Type: Report from Study
  Country: IT (occurrence: IT)
  Receive Date: 20221222
  Receipt Date: 20221222
  Transmission Date: 20230113
  Serious: No
  Sender: FDA-Public Use
  Company Number: IT-KARYOPHARM-2022KPT001620

PATIENT
  Age: 50 Year
  Sex: Male

DRUGS (5)
  1. SELINEXOR [Suspect]
     Active Substance: SELINEXOR
     Indication: Sarcoma
     Dosage: UNK
     Dates: start: 20211112
  2. SELINEXOR [Suspect]
     Active Substance: SELINEXOR
     Dosage: 60 MG
     Route: 048
     Dates: end: 20220526
  3. DEXAMETHASONE [Concomitant]
     Active Substance: DEXAMETHASONE
  4. ONDANSETRON [Concomitant]
     Active Substance: ONDANSETRON
  5. LEVOSULPIRIDE [Concomitant]
     Active Substance: LEVOSULPIRIDE

REACTIONS (1)
  - Haematotoxicity [Unknown]

NARRATIVE: CASE EVENT DATE: 20220101
